FAERS Safety Report 25845577 (Version 1)
Quarter: 2025Q3

REPORT INFORMATION
  Report Type: Spontaneous
  Country: US (occurrence: US)
  Receive Date: 20250925
  Receipt Date: 20250925
  Transmission Date: 20251020
  Serious: No
  Sender: GILEAD
  Company Number: US-GILEAD-2025-0729902

PATIENT
  Age: 45 Year
  Sex: Male

DRUGS (2)
  1. YEZTUGO [Suspect]
     Active Substance: LENACAPAVIR SODIUM
     Indication: Prophylaxis against HIV infection
     Route: 065
     Dates: start: 20250922, end: 20250923
  2. YEZTUGO [Suspect]
     Active Substance: LENACAPAVIR SODIUM
     Indication: Prophylaxis against HIV infection
     Route: 065
     Dates: start: 20250922, end: 20250923

REACTIONS (2)
  - Nodule [Not Recovered/Not Resolved]
  - Contusion [Not Recovered/Not Resolved]

NARRATIVE: CASE EVENT DATE: 20250922
